FAERS Safety Report 4735129-1 (Version None)
Quarter: 2005Q3

REPORT INFORMATION
  Report Type: 
  Country: None (occurrence: None)
  Receive Date: 20050804
  Receipt Date: 20050720
  Transmission Date: 20060218
  Serious: Yes (Other)
  Sender: FDA-Public Use
  Company Number: USA0506100870

PATIENT
  Age: 51 Year
  Sex: Male

DRUGS (3)
  1. CIALIS [Suspect]
     Indication: ERECTILE DYSFUNCTION
     Dosage: 10 MG
     Dates: start: 20030101, end: 20050101
  2. NOVOLIN NPH (INSULIN HUMAN INJECTION, ISOPHANE) [Concomitant]
  3. NOVOLIN /00030501/(INSULIN  /00030501/) [Concomitant]

REACTIONS (8)
  - AMNESIA [None]
  - ASTHENIA [None]
  - CHROMATOPSIA [None]
  - CONVULSION [None]
  - ERYTHROPSIA [None]
  - MUSCLE SPASMS [None]
  - NECK PAIN [None]
  - SHOULDER PAIN [None]
